FAERS Safety Report 5627337-2 (Version None)
Quarter: 2008Q1

REPORT INFORMATION
  Report Type: 
  Country: None (occurrence: None)
  Receive Date: 20080215
  Receipt Date: 20080204
  Transmission Date: 20080703
  Serious: Yes (Other)
  Sender: FDA-Public Use
  Company Number: JP-JNJFOC-20080105112

PATIENT
  Sex: Male
  Weight: 57 kg

DRUGS (12)
  1. DUROTEP [Suspect]
     Route: 062
  2. DUROTEP [Suspect]
     Route: 062
  3. DUROTEP [Suspect]
     Indication: CANCER PAIN
     Route: 062
  4. FENTANYL CITRATE [Suspect]
     Route: 042
  5. FENTANYL CITRATE [Suspect]
     Route: 042
  6. FENTANYL CITRATE [Suspect]
     Route: 042
  7. FENTANYL CITRATE [Suspect]
     Route: 042
  8. FENTANYL CITRATE [Suspect]
     Indication: CANCER PAIN
     Route: 042
  9. MOBIC [Concomitant]
     Indication: CANCER PAIN
     Route: 048
  10. MUCOSTA [Concomitant]
     Indication: GASTRITIS PROPHYLAXIS
     Route: 048
  11. TRYPTANOL [Concomitant]
     Indication: CANCER PAIN
     Route: 048
  12. LASIX [Concomitant]
     Indication: OEDEMA
     Route: 048

REACTIONS (2)
  - COMA [None]
  - DRUG EFFECT INCREASED [None]
